FAERS Safety Report 10078778 (Version 3)
Quarter: 2014Q2

REPORT INFORMATION
  Report Type: Spontaneous
  Country: DE (occurrence: DE)
  Receive Date: 20140415
  Receipt Date: 20140515
  Transmission Date: 20141212
  Serious: Yes (Other)
  Sender: FDA-Public Use
  Company Number: DE-PFIZER INC-2014102220

PATIENT
  Age: 70 Year
  Sex: Female

DRUGS (4)
  1. PANTOPRAZOLE [Suspect]
     Dosage: 40 MG, DAILY
     Route: 065
     Dates: start: 201310
  2. PANTOPRAZOLE [Suspect]
     Dosage: 20 MG, DAILY
     Route: 065
  3. PANTOPRAZOLE [Suspect]
     Dosage: 20 EVERY SECOND DAY
  4. PREDNISOLONE [Concomitant]
     Indication: SJOGREN^S SYNDROME
     Dosage: 2 MG, DAILY

REACTIONS (1)
  - Autoimmune hepatitis [Unknown]
